FAERS Safety Report 18725113 (Version 1)
Quarter: 2021Q1

REPORT INFORMATION
  Report Type: Report from Study
  Country: GB (occurrence: GB)
  Receive Date: 20210111
  Receipt Date: 20210111
  Transmission Date: 20210419
  Serious: Yes (Other)
  Sender: FDA-Public Use
  Company Number: GB-SAMSUNG BIOEPIS-SB-2021-00234

PATIENT
  Sex: Female

DRUGS (1)
  1. IMRALDI [Suspect]
     Active Substance: ADALIMUMAB
     Indication: RHEUMATOID ARTHRITIS
     Route: 058
     Dates: start: 20201015

REACTIONS (6)
  - Blood test abnormal [Unknown]
  - Arthralgia [Unknown]
  - Walking aid user [Unknown]
  - Product temperature excursion issue [Unknown]
  - Immunosuppression [Unknown]
  - Grip strength decreased [Unknown]
